FAERS Safety Report 9123777 (Version 1)
Quarter: 2013Q1

REPORT INFORMATION
  Report Type: Report from Study
  Country: GB (occurrence: GB)
  Receive Date: 20130115
  Receipt Date: 20130115
  Transmission Date: 20140127
  Serious: Yes (Hospitalization)
  Sender: FDA-Public Use
  Company Number: GB-ROCHE-1050489

PATIENT
  Age: 54 Year
  Sex: Male
  Weight: 86 kg

DRUGS (6)
  1. BEVACIZUMAB [Suspect]
     Indication: ADENOCARCINOMA
     Dosage: DATE OF MOST RECENT DOSE : 22/AUG/2012, 640
     Route: 042
     Dates: start: 20120208
  2. CAPECITABINE [Suspect]
     Indication: ADENOCARCINOMA
     Dosage: DATE OF MOST RECENT DOSE : 28/AUG/2012 LAST DOSE : 1600
     Route: 048
     Dates: start: 20120208
  3. DOMPERIDONE [Suspect]
     Indication: PRODUCT USED FOR UNKNOWN INDICATION
     Route: 048
     Dates: start: 20120822
  4. OMEPRAZOLE [Suspect]
     Indication: PRODUCT USED FOR UNKNOWN INDICATION
     Route: 048
     Dates: start: 20120822
  5. CISPLATIN [Suspect]
     Indication: ADENOCARCINOMA
     Dosage: DATE OF LAST DOSE PRIOR TO SAE : 22/AUG/2012 LAST DOSE : 132
     Route: 042
     Dates: start: 20120208
  6. EPIRUBICIN [Suspect]
     Indication: ADENOCARCINOMA
     Dosage: DATE OF MOST RECENT DOSE PRIOR TO SAE : 22/AUG/2012, 110
     Route: 042
     Dates: start: 20120208

REACTIONS (2)
  - Pyrexia [Recovered/Resolved]
  - Infection [Recovered/Resolved]
